FAERS Safety Report 14101373 (Version 1)
Quarter: 2017Q4

REPORT INFORMATION
  Report Type: Report from Study
  Country: JP (occurrence: JP)
  Receive Date: 20171018
  Receipt Date: 20171018
  Transmission Date: 20180321
  Serious: Yes (Hospitalization, Disabling)
  Sender: FDA-Public Use
  Company Number: JP-ASTRAZENECA-2017SF04760

PATIENT
  Age: 75 Year
  Sex: Male
  Weight: 90 kg

DRUGS (15)
  1. FORXIGA [Suspect]
     Active Substance: DAPAGLIFLOZIN
     Indication: TYPE 2 DIABETES MELLITUS
     Dosage: MORNING
     Route: 048
     Dates: start: 20150604, end: 20160225
  2. PARIET [Concomitant]
     Active Substance: RABEPRAZOLE SODIUM
     Route: 048
  3. ELIQUIS [Concomitant]
     Active Substance: APIXABAN
     Route: 048
  4. MAINTATE [Concomitant]
     Active Substance: BISOPROLOL FUMARATE
     Route: 048
  5. LYXUMIA [Concomitant]
     Active Substance: LIXISENATIDE
     Indication: TYPE 2 DIABETES MELLITUS
     Route: 065
  6. LOTRIGA [Concomitant]
     Active Substance: OMEGA-3-ACID ETHYL ESTERS
     Route: 048
     Dates: start: 20150724, end: 20151001
  7. FORXIGA [Suspect]
     Active Substance: DAPAGLIFLOZIN
     Indication: TYPE 2 DIABETES MELLITUS
     Dosage: MORNING
     Route: 048
     Dates: start: 20150212, end: 20150603
  8. METGLUCO [Concomitant]
     Active Substance: METFORMIN HYDROCHLORIDE
     Indication: TYPE 2 DIABETES MELLITUS
     Route: 048
  9. VASOLAN [Concomitant]
     Active Substance: VERAPAMIL HYDROCHLORIDE
     Route: 048
  10. ALDACTONE A [Concomitant]
     Active Substance: SPIRONOLACTONE
     Route: 048
  11. HALFDIGOXIN [Concomitant]
     Active Substance: DIGOXIN
     Route: 048
  12. COVERSYL [Concomitant]
     Active Substance: PERINDOPRIL
     Route: 048
  13. AMARYL [Concomitant]
     Active Substance: GLIMEPIRIDE
     Indication: TYPE 2 DIABETES MELLITUS
     Route: 048
  14. LANTUS [Concomitant]
     Active Substance: INSULIN GLARGINE
     Indication: TYPE 2 DIABETES MELLITUS
     Route: 065
  15. NORVASC [Concomitant]
     Active Substance: AMLODIPINE BESYLATE
     Route: 048
     Dates: end: 20151119

REACTIONS (2)
  - Off label use [Unknown]
  - Cerebral infarction [Recovered/Resolved with Sequelae]

NARRATIVE: CASE EVENT DATE: 20160225
